FAERS Safety Report 23983547 (Version 1)
Quarter: 2024Q2

REPORT INFORMATION
  Report Type: Spontaneous
  Country: US (occurrence: US)
  Receive Date: 20240617
  Receipt Date: 20240617
  Transmission Date: 20240716
  Serious: No
  Sender: FDA-Public Use
  Company Number: US-ABBVIE-5799706

PATIENT

DRUGS (1)
  1. LATISSE [Suspect]
     Active Substance: BIMATOPROST
     Indication: Product used for unknown indication
     Dosage: 0.3MG/ML SOLUTION
     Route: 047
     Dates: start: 202406

REACTIONS (2)
  - Scleral discolouration [Unknown]
  - Eye irritation [Unknown]

NARRATIVE: CASE EVENT DATE: 20240601
